FAERS Safety Report 21937586 (Version 1)
Quarter: 2023Q1

REPORT INFORMATION
  Report Type: Other
  Country: US (occurrence: None)
  Receive Date: 20230201
  Receipt Date: 20230201
  Transmission Date: 20230417
  Serious: No
  Sender: FDA-Public Use
  Company Number: US-ROCHE-3274960

PATIENT
  Age: 44 Year
  Sex: Female

DRUGS (1)
  1. OCREVUS [Suspect]
     Active Substance: OCRELIZUMAB
     Indication: Relapsing multiple sclerosis
     Dosage: THEN 600 MG EVERY 6 MONTHS. DATES OF TREATMENT: 08/DEC/2021 19/MAR/2021 09/JUN/2022 08/DEC/2021 + 02
     Route: 065

REACTIONS (1)
  - Streptococcal infection [Unknown]
